FAERS Safety Report 8992232 (Version 1)
Quarter: 2012Q4

REPORT INFORMATION
  Report Type: Report from Study
  Country: IN (occurrence: IN)
  Receive Date: 20121231
  Receipt Date: 20121231
  Transmission Date: 20130627
  Serious: Yes (Death, Hospitalization)
  Sender: FDA-Public Use
  Company Number: IN-BRISTOL-MYERS SQUIBB COMPANY-15643265

PATIENT
  Age: 70 Year
  Sex: Male

DRUGS (3)
  1. DASATINIB [Suspect]
     Indication: PROSTATE CANCER
     Dosage: 1 DF: 100 unit nos
     Route: 048
     Dates: start: 20110108, end: 20110328
  2. DOCETAXEL [Suspect]
     Indication: PROSTATE CANCER
     Route: 042
     Dates: start: 20110323, end: 20110323
  3. PREDNISONE [Suspect]
     Indication: PROSTATE CANCER
     Dosage: Tablet
     Dates: start: 20110108, end: 20110328

REACTIONS (2)
  - Lower respiratory tract infection [Fatal]
  - Pleural effusion [Fatal]
